FAERS Safety Report 9807879 (Version 4)
Quarter: 2014Q1

REPORT INFORMATION
  Report Type: Spontaneous
  Country: GB (occurrence: GB)
  Receive Date: 20140110
  Receipt Date: 20140331
  Transmission Date: 20141002
  Serious: Yes (Other)
  Sender: FDA-Public Use
  Company Number: GB-VERTEX PHARMACEUTICALS INC-2013-011148

PATIENT
  Age: 59 Year
  Sex: Male
  Weight: 52.4 kg

DRUGS (6)
  1. INCIVO [Suspect]
     Indication: HEPATITIS C
     Dosage: 750 MG, TID
     Route: 048
     Dates: start: 20120529, end: 20130531
  2. INCIVO [Suspect]
     Dosage: 750 MG, UNK
     Route: 048
     Dates: start: 20120529, end: 20120701
  3. COPEGUS [Suspect]
     Indication: HEPATITIS C
     Dosage: DOSAGE FORM: UNSPECIFIED
     Route: 065
     Dates: start: 20120529, end: 20120531
  4. COPEGUS [Suspect]
     Dosage: DOSAGE FORM: UNSPECIFIED
     Route: 065
     Dates: start: 20120529, end: 20120701
  5. PEGASYS [Suspect]
     Indication: HEPATITIS C
     Dosage: DOSAGE FORM: UNSPECIFIED
     Route: 058
     Dates: start: 20120529, end: 20120531
  6. PEGASYS [Suspect]
     Dosage: DOSAGE FORM: UNSPECIFIED
     Route: 058
     Dates: start: 20120529, end: 20120701

REACTIONS (2)
  - Virologic failure [Unknown]
  - Off label use [Unknown]
